FAERS Safety Report 6028846-7 (Version None)
Quarter: 2009Q1

REPORT INFORMATION
  Report Type: 
  Country: None (occurrence: None)
  Receive Date: 20090106
  Receipt Date: 20090102
  Transmission Date: 20090719
  Serious: Yes (Life-Threatening, Hospitalization)
  Sender: FDA-Public Use
  Company Number: NO-TEVA-183344ISR

PATIENT
  Sex: Female

DRUGS (3)
  1. METHOTREXATE [Suspect]
     Route: 048
     Dates: start: 19980101, end: 20081105
  2. METHOTREXATE [Suspect]
     Route: 048
     Dates: start: 20081201
  3. ETANERCEPT [Suspect]
     Indication: RHEUMATOID ARTHRITIS
     Route: 058
     Dates: start: 19980101, end: 20081105

REACTIONS (3)
  - LEUKOPENIA [None]
  - PNEUMONIA [None]
  - SEPSIS [None]
